FAERS Safety Report 25971711 (Version 2)
Quarter: 2025Q4

REPORT INFORMATION
  Report Type: Spontaneous
  Country: US (occurrence: US)
  Receive Date: 20251029
  Receipt Date: 20251107
  Transmission Date: 20260117
  Serious: Yes (Other)
  Sender: US WORLDMEDS
  Company Number: US-USWM-UWM202510-000165

PATIENT
  Sex: Male

DRUGS (3)
  1. EFLORNITHINE [Suspect]
     Active Substance: EFLORNITHINE
     Indication: Brain stem glioma
     Dosage: NOT PROVIDED
     Dates: start: 20241010, end: 202410
  2. EFLORNITHINE [Suspect]
     Active Substance: EFLORNITHINE
     Dosage: RESTARTED DOSE
     Dates: end: 20251018
  3. DEXAMETHASONE [Concomitant]
     Active Substance: DEXAMETHASONE
     Dosage: NOT PROVIDED
     Dates: end: 202410

REACTIONS (6)
  - Seizure [Unknown]
  - Aura [Unknown]
  - Neoplasm progression [Unknown]
  - Headache [Unknown]
  - Weight increased [Unknown]
  - Off label use [Unknown]

NARRATIVE: CASE EVENT DATE: 20241010
